FAERS Safety Report 5727334-2 (Version None)
Quarter: 2008Q2

REPORT INFORMATION
  Report Type: 
  Country: None (occurrence: None)
  Receive Date: 20080505
  Receipt Date: 20080501
  Transmission Date: 20081010
  Serious: Yes (Life-Threatening)
  Sender: FDA-Public Use
  Company Number: CH-ASTRAZENECA-2008AC01113

PATIENT
  Age: 10 Year
  Sex: Male

DRUGS (4)
  1. PROPOFOL [Suspect]
     Indication: ANAESTHESIA
     Route: 042
  2. METHYLPHENIDATE HCL [Interacting]
     Indication: ATTENTION DEFICIT/HYPERACTIVITY DISORDER
  3. ALFENTANIL [Interacting]
     Indication: ANAESTHESIA
     Route: 042
  4. SEVOFLURANE [Concomitant]
     Route: 055

REACTIONS (2)
  - CARDIAC ARREST [None]
  - DRUG INTERACTION [None]
